FAERS Safety Report 9323949 (Version 2)
Quarter: 2013Q2

REPORT INFORMATION
  Report Type: Spontaneous
  Country: US (occurrence: US)
  Receive Date: 20130603
  Receipt Date: 20130613
  Transmission Date: 20140414
  Serious: Yes (Other)
  Sender: FDA-Public Use
  Company Number: US-BRISTOL-MYERS SQUIBB COMPANY-18941880

PATIENT
  Age: 59 Year
  Sex: Female
  Weight: 104.31 kg

DRUGS (3)
  1. ABATACEPT SUBQ INJECTION 125MG/ML [Suspect]
     Indication: RHEUMATOID ARTHRITIS
     Dosage: LAST INJ:21MAY13
     Route: 058
  2. OXYCODONE [Concomitant]
     Indication: PAIN
  3. TYLENOL [Concomitant]
     Indication: PAIN

REACTIONS (2)
  - Tendon rupture [Unknown]
  - Fall [Unknown]
